FAERS Safety Report 14222499 (Version 1)
Quarter: 2017Q4

REPORT INFORMATION
  Report Type: Spontaneous
  Country: JP (occurrence: JP)
  Receive Date: 20171124
  Receipt Date: 20171124
  Transmission Date: 20180321
  Serious: Yes (Other)
  Sender: FDA-Public Use
  Company Number: JP-ALKABELLO-2017AA003854

PATIENT
  Age: 13 Year
  Sex: Male

DRUGS (2)
  1. MITICURE MITE SUBLINGUAL TABLET [Suspect]
     Active Substance: DERMATOPHAGOIDES FARINAE\DERMATOPHAGOIDES PTERONYSSINUS
     Dosage: DOSE UNIT:3300 JAPANESE ALLERGY UNIT
     Route: 060
     Dates: start: 20171004, end: 20171010
  2. MITICURE MITE SUBLINGUAL TABLET [Suspect]
     Active Substance: DERMATOPHAGOIDES FARINAE\DERMATOPHAGOIDES PTERONYSSINUS
     Dosage: DOSE UNIT:10000 JAPANESE ALLERGY UNIT
     Route: 060
     Dates: start: 20171011

REACTIONS (2)
  - Loss of consciousness [Recovered/Resolved]
  - Orthostatic intolerance [Recovered/Resolved]

NARRATIVE: CASE EVENT DATE: 20171113
